FAERS Safety Report 20825424 (Version 3)
Quarter: 2022Q3

REPORT INFORMATION
  Report Type: Spontaneous
  Country: US (occurrence: US)
  Receive Date: 20220513
  Receipt Date: 20220720
  Transmission Date: 20221027
  Serious: No
  Sender: FDA-Public Use
  Company Number: US-BRISTOL-MYERS SQUIBB COMPANY-2022-020258

PATIENT
  Age: 75 Year
  Sex: Male
  Weight: 73.94 kg

DRUGS (2)
  1. POMALYST [Suspect]
     Active Substance: POMALIDOMIDE
     Indication: Plasma cell myeloma
     Dosage: FREQUENCY : 21 ON 7 OFF
     Route: 048
     Dates: start: 20220409
  2. POMALYST [Suspect]
     Active Substance: POMALIDOMIDE
     Dosage: 3W, 1W OFF
     Route: 048

REACTIONS (7)
  - Oedema peripheral [Unknown]
  - Rash [Unknown]
  - Joint swelling [Recovered/Resolved]
  - Pruritus [Unknown]
  - Peripheral swelling [Recovered/Resolved]
  - Swelling face [Unknown]
  - Mumps [Unknown]

NARRATIVE: CASE EVENT DATE: 20210401
